FAERS Safety Report 4739879-2 (Version None)
Quarter: 2005Q3

REPORT INFORMATION
  Report Type: 
  Country: None (occurrence: None)
  Receive Date: 20050809
  Receipt Date: 20050809
  Transmission Date: 20060218
  Serious: Yes (Hospitalization)
  Sender: FDA-Public Use
  Company Number: None

PATIENT
  Sex: Female
  Weight: 48.0813 kg

DRUGS (6)
  1. VELCADE [Suspect]
     Indication: DIFFUSE LARGE B-CELL LYMPHOMA
     Dosage: 1.3 MG/M2, DAYS 1 AND 4 OF 21 DAYS IVP
     Route: 042
  2. DIFLUCAN [Concomitant]
  3. LOZAAR [Concomitant]
  4. VERAPAMIL [Concomitant]
  5. CIPROFLOXACIN [Concomitant]
  6. HCA VITAMIN B6 [Concomitant]

REACTIONS (2)
  - DEHYDRATION [None]
  - FAILURE TO THRIVE [None]
